FAERS Safety Report 12103087 (Version 2)
Quarter: 2016Q1

REPORT INFORMATION
  Report Type: Spontaneous
  Country: FR (occurrence: FR)
  Receive Date: 20160222
  Receipt Date: 20160301
  Transmission Date: 20160526
  Serious: Yes (Death, Other)
  Sender: FDA-Public Use
  Company Number: FR-MYLANLABS-2016M1007158

PATIENT

DRUGS (1)
  1. BACLOFEN. [Suspect]
     Active Substance: BACLOFEN
     Indication: PRODUCT USED FOR UNKNOWN INDICATION
     Dosage: 20 DOSAGE FORM (STRENGTH: 200MG)
     Route: 065

REACTIONS (6)
  - Completed suicide [Fatal]
  - Platelet count decreased [Unknown]
  - Intentional overdose [Fatal]
  - Cardio-respiratory arrest [Fatal]
  - Visceral congestion [Unknown]
  - Toxicity to various agents [Fatal]
